FAERS Safety Report 26147473 (Version 1)
Quarter: 2025Q4

REPORT INFORMATION
  Report Type: Report from Study
  Country: GB (occurrence: GB)
  Receive Date: 20251211
  Receipt Date: 20251211
  Transmission Date: 20260117
  Serious: Yes (Death, Other)
  Sender: CELLTRION
  Company Number: GB-CELLTRION INC.-2024GB032590

PATIENT

DRUGS (2)
  1. ADALIMUMAB-AATY [Suspect]
     Active Substance: ADALIMUMAB-AATY
     Indication: Pyoderma gangrenosum
     Dosage: 40MG PEN ONCE EVERY WEEK
     Route: 058
     Dates: start: 202412
  2. ADALIMUMAB-AATY [Suspect]
     Active Substance: ADALIMUMAB-AATY
     Dosage: 2 X YUFLYMA 40MG EVERY TWO WEEKS
     Route: 058
     Dates: start: 202412, end: 202512

REACTIONS (2)
  - Death [Fatal]
  - Off label use [Unknown]
